FAERS Safety Report 7564993-6 (Version None)
Quarter: 2011Q2

REPORT INFORMATION
  Report Type: 
  Country: None (occurrence: None)
  Receive Date: 20110622
  Receipt Date: 20110317
  Transmission Date: 20111010
  Serious: Yes (Death)
  Sender: FDA-Public Use
  Company Number: US-MYLANLABS-2011S1005811

PATIENT
  Age: 52 Year
  Sex: Female

DRUGS (11)
  1. XANAX [Concomitant]
     Route: 048
  2. CELEBREX [Concomitant]
     Route: 048
  3. INSULIN [Concomitant]
     Route: 048
  4. OMEPRAZOLE [Concomitant]
     Route: 048
  5. CLOZAPINE [Suspect]
     Indication: SCHIZOAFFECTIVE DISORDER BIPOLAR TYPE
     Route: 048
  6. POTASSIUM [Concomitant]
     Route: 048
  7. RISPERDAL [Concomitant]
     Route: 048
  8. DEPAKOTE ER [Concomitant]
     Route: 048
  9. CLOZAPINE [Suspect]
     Route: 048
  10. VENTOLIN HFA [Concomitant]
     Route: 048
  11. FUROSEMIDE [Concomitant]
     Route: 048

REACTIONS (1)
  - DEATH [None]
